FAERS Safety Report 16736638 (Version 1)
Quarter: 2019Q3

REPORT INFORMATION
  Report Type: Spontaneous
  Country: US (occurrence: US)
  Receive Date: 20190823
  Receipt Date: 20190823
  Transmission Date: 20191005
  Serious: Yes (Other)
  Sender: FDA-Public Use
  Company Number: US-OXFORD PHARMACEUTICALS, LLC-2019OXF00118

PATIENT
  Age: 58 Year
  Sex: Male

DRUGS (2)
  1. MYCOPHENOLATE [Suspect]
     Active Substance: MYCOPHENOLIC ACID
     Indication: PROPHYLAXIS AGAINST TRANSPLANT REJECTION
     Dosage: 1500 MG, 2X/DAY (^RECONSTITUTED^ IN 250 ML OF 5% DEXTROSE)
     Route: 042
  2. DEXTROSE. [Concomitant]
     Active Substance: DEXTROSE
     Dosage: 250 ML, 2X/DAY
     Route: 042

REACTIONS (2)
  - Administration site extravasation [Unknown]
  - Soft tissue necrosis [Unknown]
